FAERS Safety Report 21486025 (Version 1)
Quarter: 2022Q4

REPORT INFORMATION
  Report Type: Spontaneous
  Country: US (occurrence: US)
  Receive Date: 20221020
  Receipt Date: 20221020
  Transmission Date: 20230113
  Serious: Yes (Other)
  Sender: FDA-Public Use
  Company Number: US-AMGEN-USASP1202000005

PATIENT
  Age: 56 Year
  Sex: Female

DRUGS (1)
  1. BEVACIZUMAB [Suspect]
     Active Substance: BEVACIZUMAB
     Indication: Glaucoma
     Dosage: UNK

REACTIONS (3)
  - Angle closure glaucoma [Unknown]
  - Drug effective for unapproved indication [Unknown]
  - Off label use [Unknown]
